FAERS Safety Report 7801427-8 (Version None)
Quarter: 2011Q4

REPORT INFORMATION
  Report Type: 
  Country: None (occurrence: None)
  Receive Date: 20111006
  Receipt Date: 20111006
  Transmission Date: 20120403
  Serious: Yes (Hospitalization)
  Sender: FDA-Public Use
  Company Number: None

PATIENT
  Age: 92 Year
  Sex: Female
  Weight: 68.5 kg

DRUGS (13)
  1. LASIX [Concomitant]
  2. XANAX [Concomitant]
  3. TYLENOL ARTHRITIS (ALL CHRONIC) [Concomitant]
  4. LIPITOR [Concomitant]
  5. FISH OIL [Concomitant]
  6. BENICAR [Concomitant]
  7. COLACE [Concomitant]
  8. MOM [Concomitant]
  9. COUMADIN [Suspect]
  10. COUMADIN [Suspect]
  11. METOPROLOL SUCCINATE [Concomitant]
  12. CENTRUM SILVER [Concomitant]
  13. LEVOTHYROXINE SODIUM [Concomitant]

REACTIONS (3)
  - INTERNATIONAL NORMALISED RATIO INCREASED [None]
  - DYSPHAGIA [None]
  - EPISTAXIS [None]
